FAERS Safety Report 17492146 (Version 1)
Quarter: 2020Q1

REPORT INFORMATION
  Report Type: Spontaneous
  Country: ES (occurrence: ES)
  Receive Date: 20200304
  Receipt Date: 20200304
  Transmission Date: 20200409
  Serious: Yes (Hospitalization)
  Sender: FDA-Public Use
  Company Number: ES-SUN PHARMACEUTICAL INDUSTRIES LTD-2020R1-238863

PATIENT
  Age: 68 Year
  Sex: Male

DRUGS (2)
  1. UFH [Concomitant]
     Active Substance: HEPARIN SODIUM
     Indication: CARDIAC VALVE REPLACEMENT COMPLICATION
     Dosage: UNK
     Route: 065
  2. ASPIRIN. [Suspect]
     Active Substance: ASPIRIN
     Indication: CARDIAC VALVE REPLACEMENT COMPLICATION
     Dosage: UNK
     Route: 065

REACTIONS (2)
  - Cardiogenic shock [Unknown]
  - Disease progression [Unknown]
